FAERS Safety Report 17517456 (Version 1)
Quarter: 2020Q1

REPORT INFORMATION
  Report Type: Spontaneous
  Country: US (occurrence: US)
  Receive Date: 20200309
  Receipt Date: 20200309
  Transmission Date: 20200409
  Serious: No
  Sender: FDA-Public Use
  Company Number: None

PATIENT
  Age: 90 Year
  Sex: Female
  Weight: 64.35 kg

DRUGS (22)
  1. ALECENSA [Suspect]
     Active Substance: ALECTINIB HYDROCHLORIDE
     Indication: LUNG NEOPLASM MALIGNANT
     Route: 048
     Dates: start: 20191230
  2. CALCIUM + VITAMIN D [Concomitant]
     Active Substance: CALCIUM\VITAMIN D
  3. SPIRONOLACTONE. [Concomitant]
     Active Substance: SPIRONOLACTONE
  4. FOSAMAX [Concomitant]
     Active Substance: ALENDRONATE SODIUM
  5. LEVOTHYROXINE. [Concomitant]
     Active Substance: LEVOTHYROXINE
  6. CARDIZEM [Concomitant]
     Active Substance: DILTIAZEM HYDROCHLORIDE
  7. LOVENOX [Concomitant]
     Active Substance: ENOXAPARIN SODIUM
  8. MAGOX [Concomitant]
  9. MOM [Concomitant]
     Active Substance: MAGNESIUM HYDROXIDE
  10. ALBUTEROL. [Concomitant]
     Active Substance: ALBUTEROL
  11. MVI [Concomitant]
     Active Substance: VITAMINS
  12. TYLENOL [Concomitant]
     Active Substance: ACETAMINOPHEN
  13. ASPIRIN. [Concomitant]
     Active Substance: ASPIRIN
  14. KEFLEX [Concomitant]
     Active Substance: CEPHALEXIN
  15. METOPROLOL. [Concomitant]
     Active Substance: METOPROLOL
  16. AMLODIPINE [Concomitant]
     Active Substance: AMLODIPINE BESYLATE
  17. AMOXICILLIN. [Concomitant]
     Active Substance: AMOXICILLIN
  18. ANASTROZOLE. [Concomitant]
     Active Substance: ANASTROZOLE
  19. FUROSEMIDE. [Concomitant]
     Active Substance: FUROSEMIDE
  20. LISINOPRIL. [Concomitant]
     Active Substance: LISINOPRIL
  21. KCL [Concomitant]
     Active Substance: POTASSIUM CHLORIDE
  22. BREO ELLIPTA [Concomitant]
     Active Substance: FLUTICASONE FUROATE\VILANTEROL TRIFENATATE

REACTIONS (3)
  - Dizziness [None]
  - Fluid retention [None]
  - Rash [None]

NARRATIVE: CASE EVENT DATE: 20200309
